FAERS Safety Report 8205296-6 (Version None)
Quarter: 2012Q1

REPORT INFORMATION
  Report Type: 
  Country: None (occurrence: None)
  Receive Date: 20120313
  Receipt Date: 20120307
  Transmission Date: 20120608
  Serious: Yes (Death, Hospitalization)
  Sender: FDA-Public Use
  Company Number: US-JNJFOC-20120305316

PATIENT
  Age: 56 Year
  Sex: Male

DRUGS (3)
  1. INVEGA SUSTENNA [Suspect]
     Indication: SCHIZOPHRENIA
     Route: 030
     Dates: start: 20111121
  2. INVEGA SUSTENNA [Suspect]
     Route: 030
     Dates: start: 20110721
  3. INVEGA SUSTENNA [Suspect]
     Route: 030
     Dates: start: 20111114, end: 20111121

REACTIONS (3)
  - DEATH [None]
  - DRUG DOSE OMISSION [None]
  - HOSPITALISATION [None]
